FAERS Safety Report 7992342-8 (Version None)
Quarter: 2011Q4

REPORT INFORMATION
  Report Type: 
  Country: None (occurrence: None)
  Receive Date: 20111219
  Receipt Date: 20101208
  Transmission Date: 20120403
  Serious: No
  Sender: FDA-Public Use
  Company Number: US-ASTRAZENECA-2010SE58346

PATIENT
  Age: 25940 Day
  Sex: Female
  Weight: 72.6 kg

DRUGS (1)
  1. CRESTOR [Suspect]
     Route: 048
     Dates: start: 20101201

REACTIONS (3)
  - PAIN IN EXTREMITY [None]
  - MOVEMENT DISORDER [None]
  - FEELING ABNORMAL [None]
